FAERS Safety Report 9788512 (Version 2)
Quarter: 2013Q4

REPORT INFORMATION
  Report Type: Spontaneous
  Country: US (occurrence: US)
  Receive Date: 20131230
  Receipt Date: 20131230
  Transmission Date: 20140711
  Serious: Yes (Other)
  Sender: FDA-Public Use
  Company Number: US-GE HEALTHCARE MEDICAL DIAGNOSTICS-OSCN-PR-1101S-0006

PATIENT
  Age: 52 Year
  Sex: Male

DRUGS (1)
  1. OMNISCAN [Suspect]
     Indication: HEPATIC CIRRHOSIS
     Dates: start: 20061103, end: 20061103

REACTIONS (1)
  - Nephrogenic systemic fibrosis [Not Recovered/Not Resolved]
